FAERS Safety Report 17996901 (Version 1)
Quarter: 2020Q3

REPORT INFORMATION
  Report Type: Spontaneous
  Country: US (occurrence: US)
  Receive Date: 20200708
  Receipt Date: 20200708
  Transmission Date: 20201103
  Serious: Yes (Other)
  Sender: FDA-Public Use
  Company Number: US-NAPPMUNDI-USA-2020-0156028

PATIENT

DRUGS (1)
  1. OXYCONTIN [Suspect]
     Active Substance: OXYCODONE HYDROCHLORIDE
     Indication: HIP SURGERY
     Dosage: UNK
     Route: 048
     Dates: start: 2000, end: 2009

REACTIONS (4)
  - Illness [Unknown]
  - Major depression [Unknown]
  - Influenza like illness [Unknown]
  - Alcoholism [Unknown]
